FAERS Safety Report 14636211 (Version 1)
Quarter: 2018Q1

REPORT INFORMATION
  Report Type: Not Available
  Country: US (occurrence: US)
  Receive Date: 20180314
  Receipt Date: 20180314
  Transmission Date: 20180509
  Serious: No
  Sender: FDA-Public Use
  Company Number: US-FOUNDATIONCONSUMERHC-2018-US-001552

PATIENT
  Age: 32 Year
  Sex: Female
  Weight: 67.13 kg

DRUGS (2)
  1. TOPIRIMATE [Concomitant]
     Active Substance: TOPIRAMATE
     Dosage: 50 MG TWICE PER DAY
     Route: 048
     Dates: start: 20170601
  2. AFTERA [Suspect]
     Active Substance: LEVONORGESTREL
     Dosage: 1.5 MG  DOSE X 1
     Route: 048
     Dates: start: 20180122, end: 20180122

REACTIONS (2)
  - Intentional product misuse [Recovered/Resolved]
  - Vaginal haemorrhage [Not Recovered/Not Resolved]

NARRATIVE: CASE EVENT DATE: 20180122
